FAERS Safety Report 4532380-0 (Version None)
Quarter: 2004Q4

REPORT INFORMATION
  Report Type: 
  Country: None (occurrence: None)
  Receive Date: 20041220
  Receipt Date: 20041215
  Transmission Date: 20050328
  Serious: Yes (Hospitalization, Disabling)
  Sender: FDA-Public Use
  Company Number: SE-MERCK-0412SWE00029

PATIENT
  Age: 52 Year
  Sex: Female

DRUGS (2)
  1. VIOXX [Suspect]
     Indication: ARTHROPATHY
     Route: 048
     Dates: start: 20010101, end: 20041001
  2. ACETAMINOPHEN [Concomitant]
     Route: 065

REACTIONS (3)
  - ABDOMINAL PAIN UPPER [None]
  - ANGINA PECTORIS [None]
  - MYOCARDIAL INFARCTION [None]
